FAERS Safety Report 19219646 (Version 4)
Quarter: 2021Q3

REPORT INFORMATION
  Report Type: Spontaneous
  Country: JP (occurrence: JP)
  Receive Date: 20210506
  Receipt Date: 20210712
  Transmission Date: 20211014
  Serious: Yes (Hospitalization)
  Sender: FDA-Public Use
  Company Number: NVSJ2021JP006818

PATIENT
  Age: 60 Year
  Sex: Female

DRUGS (2)
  1. COSENTYX [Suspect]
     Active Substance: SECUKINUMAB
     Indication: PSORIASIS
     Dosage: 300 MG, QW
     Route: 058
     Dates: start: 20191105, end: 20191203
  2. COSENTYX [Suspect]
     Active Substance: SECUKINUMAB
     Dosage: 300 MG, Q4W
     Route: 058
     Dates: start: 20191231, end: 20210407

REACTIONS (2)
  - Erysipelas [Recovered/Resolved]
  - Neutrophil count decreased [Recovered/Resolved]

NARRATIVE: CASE EVENT DATE: 20210419
